FAERS Safety Report 17799101 (Version 1)
Quarter: 2020Q2

REPORT INFORMATION
  Report Type: Spontaneous
  Country: CA (occurrence: CA)
  Receive Date: 20200518
  Receipt Date: 20200518
  Transmission Date: 20200714
  Serious: Yes (Death, Other)
  Sender: FDA-Public Use
  Company Number: CA-PFIZER INC-2011285847

PATIENT
  Sex: Male
  Weight: 43 kg

DRUGS (3)
  1. CLOFARABINE. [Suspect]
     Active Substance: CLOFARABINE
     Indication: ACUTE LYMPHOCYTIC LEUKAEMIA RECURRENT
     Dosage: 70 MG, 1X/DAY
     Route: 042
     Dates: start: 2008, end: 2008
  2. CYTARABINE. [Suspect]
     Active Substance: CYTARABINE
     Dosage: UNK
  3. ARA-C [Concomitant]
     Active Substance: CYTARABINE
     Dosage: 1 G/M2/DOSE, DAILY FOR 5 DAYS
     Route: 042
     Dates: start: 2008

REACTIONS (3)
  - Renal failure [Fatal]
  - Pulmonary oedema [Fatal]
  - Hypotension [Fatal]

NARRATIVE: CASE EVENT DATE: 2008
